FAERS Safety Report 7809301-8 (Version None)
Quarter: 2011Q4

REPORT INFORMATION
  Report Type: 
  Country: None (occurrence: None)
  Receive Date: 20111006
  Receipt Date: 20110930
  Transmission Date: 20120403
  Serious: Yes (Hospitalization)
  Sender: FDA-Public Use
  Company Number: DSA_47762_2011

PATIENT
  Sex: Male

DRUGS (1)
  1. XENAZINE [Suspect]
     Indication: PRODUCT USED FOR UNKNOWN INDICATION
     Dosage: 50 MG BID ORAL
     Route: 048
     Dates: start: 20090311

REACTIONS (2)
  - AGGRESSION [None]
  - ABNORMAL BEHAVIOUR [None]
